FAERS Safety Report 24641863 (Version 1)
Quarter: 2024Q4

REPORT INFORMATION
  Report Type: Spontaneous
  Country: US (occurrence: US)
  Receive Date: 20241120
  Receipt Date: 20241120
  Transmission Date: 20250115
  Serious: Yes (Life-Threatening, Hospitalization)
  Sender: HIKMA
  Company Number: US-MLMSERVICE-20241030-PI244204-00145-1

PATIENT
  Age: 52 Year
  Sex: Female
  Weight: 63.95 kg

DRUGS (4)
  1. FENTANYL [Suspect]
     Active Substance: FENTANYL
     Indication: Sedative therapy
     Dosage: 50 MCG OF FENTANYL WERE ADMINISTERED AFTER VERBAL CONFIRMATION, SECOND BOLUS OF 50 MCG FENTANYL WAS
     Route: 042
  2. FENTANYL [Suspect]
     Active Substance: FENTANYL
     Indication: Procedural pain
  3. LIDOCAINE [Concomitant]
     Active Substance: LIDOCAINE
     Indication: Local anaesthesia
     Dosage: UNK
     Route: 065
  4. MIDAZOLAM [Concomitant]
     Active Substance: MIDAZOLAM
     Indication: Sedative therapy
     Dosage: 2 MILLIGRAM, TOTAL
     Route: 065

REACTIONS (4)
  - Chest wall rigidity [Recovered/Resolved]
  - Unresponsive to stimuli [Recovered/Resolved]
  - Hypotension [Recovered/Resolved]
  - Mean arterial pressure decreased [Recovered/Resolved]
